FAERS Safety Report 7690294 (Version 8)
Quarter: 2012Q4

REPORT INFORMATION
  Report Type: 
  Country: US (occurrence: US)
  Receive Date: 20101202
  Receipt Date: 20120925
  Transmission Date: 20130627
  Serious: Yes (Death, Hospitalization)
  Sender: FDA-Public Use
  Company Number: US-JNJFOC-20101200806

PATIENT
  Age: 81 Year
  Sex: Male
  Weight: 64.86 kg

DRUGS (3)
  1. DOXIL [Suspect]
     Indication: PRODUCT USED FOR UNKNOWN INDICATION
     Route: 042
  2. BORTEZOMIB [Suspect]
     Indication: MULTIPLE MYELOMA
     Route: 042
     Dates: start: 20100701, end: 20100804
  3. STEROIDS NOS [Concomitant]
     Indication: PRODUCT USED FOR UNKNOWN INDICATION
     Route: 042

REACTIONS (8)
  - Plasma cell myeloma [Fatal]
  - Failure to thrive [Fatal]
  - Asthenia [Fatal]
  - Sepsis [Fatal]
  - Dysphagia [Unknown]
  - Aortic aneurysm [Not Recovered/Not Resolved]
  - Cerebral ischaemia [Not Recovered/Not Resolved]
  - Hyperproteinaemia [Not Recovered/Not Resolved]
